FAERS Safety Report 6105135-3 (Version None)
Quarter: 2009Q1

REPORT INFORMATION
  Report Type: 
  Country: None (occurrence: None)
  Receive Date: 20090306
  Receipt Date: 20090304
  Transmission Date: 20090719
  Serious: Yes (Hospitalization)
  Sender: FDA-Public Use
  Company Number: US-BIOGENIDEC-2007BI024261

PATIENT
  Age: 42 Year
  Sex: Female
  Weight: 63 kg

DRUGS (7)
  1. TYSABRI [Suspect]
     Indication: MULTIPLE SCLEROSIS
     Route: 042
     Dates: start: 20070801, end: 20070926
  2. TYSABRI [Suspect]
     Route: 042
     Dates: start: 20071122, end: 20081101
  3. NEOSPORIN [Concomitant]
     Indication: INFECTION PROPHYLAXIS
  4. SODIUM CHLORIDE [Concomitant]
     Indication: INFECTION PROPHYLAXIS
  5. DETROL [Concomitant]
     Indication: NEUROGENIC BLADDER
  6. POTASSIUM CHLORIDE [Concomitant]
     Indication: BLOOD POTASSIUM DECREASED
  7. LACTULOSE [Concomitant]
     Indication: CONSTIPATION PROPHYLAXIS

REACTIONS (8)
  - ALOPECIA [None]
  - ANKLE FRACTURE [None]
  - ARTHRALGIA [None]
  - BACK PAIN [None]
  - DRUG INEFFECTIVE [None]
  - FALL [None]
  - JOINT STIFFNESS [None]
  - OEDEMA PERIPHERAL [None]
